FAERS Safety Report 9989700 (Version 1)
Quarter: 2014Q1

REPORT INFORMATION
  Report Type: Spontaneous
  Country: US (occurrence: None)
  Receive Date: 20140123
  Receipt Date: 20140123
  Transmission Date: 20141002
  Serious: Yes (Hospitalization)
  Sender: FDA-Public Use
  Company Number: UTC-038142

PATIENT
  Age: 47 Year
  Sex: Female

DRUGS (3)
  1. REMODULIN [Suspect]
     Indication: PULMONARY ARTERIAL HYPERTENSION
     Dosage: 72 UG/KG (0.05 UG/KG, 1 IN 1 MIN), SUBCUTANEOUS
     Route: 058
     Dates: start: 20121229
  2. TRACLEER (BOSENTAN) [Concomitant]
  3. COUMADIN (WARFARIN) [Concomitant]

REACTIONS (1)
  - Dizziness [None]
